FAERS Safety Report 6565503-2 (Version None)
Quarter: 2010Q1

REPORT INFORMATION
  Report Type: 
  Country: None (occurrence: None)
  Receive Date: 20100201
  Receipt Date: 20100120
  Transmission Date: 20100710
  Serious: Yes (Life-Threatening, Hospitalization, Other)
  Sender: FDA-Public Use
  Company Number: US-ELI_LILLY_AND_COMPANY-US200912006135

PATIENT
  Age: 64 Year
  Sex: Female
  Weight: 113.38 kg

DRUGS (2)
  1. EFFIENT [Suspect]
     Indication: CAROTID ARTERY STENOSIS
     Dosage: 10 MG, DAILY (1/D)
     Dates: start: 20091223, end: 20091226
  2. ASPIRIN [Concomitant]
     Dosage: 81 MG, DAILY (1/D)

REACTIONS (3)
  - FALL [None]
  - OFF LABEL USE [None]
  - SUBDURAL HAEMATOMA [None]
